FAERS Safety Report 16598725 (Version 1)
Quarter: 2019Q3

REPORT INFORMATION
  Report Type: Spontaneous
  Country: FR (occurrence: FR)
  Receive Date: 20190719
  Receipt Date: 20190719
  Transmission Date: 20191004
  Serious: Yes (Congenital Anomaly)
  Sender: FDA-Public Use
  Company Number: FR-TAKEDA-2019TUS044083

PATIENT
  Age: 1 Month
  Sex: Male
  Weight: 3.28 kg

DRUGS (4)
  1. LEVOTHYROXINE. [Suspect]
     Active Substance: LEVOTHYROXINE
     Indication: HYPOTHYROIDISM
     Dosage: 10 MICROGRAM
     Route: 064
     Dates: end: 20181120
  2. ACIDE FOLIQUE [Suspect]
     Active Substance: FOLIC ACID
     Indication: PRODUCT USED FOR UNKNOWN INDICATION
     Dosage: UNK
     Route: 064
     Dates: end: 20180514
  3. UVEDOSE [Suspect]
     Active Substance: CHOLECALCIFEROL
     Indication: VITAMIN SUPPLEMENTATION
     Dosage: UNK
     Route: 064
     Dates: end: 20181120
  4. BRINTELLIX [Suspect]
     Active Substance: VORTIOXETINE HYDROBROMIDE
     Indication: DEPRESSION
     Dosage: 5 MILLIGRAM
     Route: 064
     Dates: end: 20180406

REACTIONS (2)
  - Pyloric stenosis [Recovered/Resolved]
  - Foetal exposure during pregnancy [Unknown]

NARRATIVE: CASE EVENT DATE: 20181231
